FAERS Safety Report 4296268-5 (Version None)
Quarter: 2004Q1

REPORT INFORMATION
  Report Type: 
  Country: None (occurrence: None)
  Receive Date: 20040217
  Receipt Date: 20031002
  Transmission Date: 20041129
  Serious: No
  Sender: FDA-Public Use
  Company Number: US-GLAXOSMITHKLINE-A0428399A

PATIENT
  Age: 60 Year
  Sex: Female

DRUGS (12)
  1. LAMICTAL [Suspect]
     Route: 048
     Dates: start: 20030709, end: 20030918
  2. EFFEXOR [Concomitant]
  3. WELLBUTRIN [Concomitant]
  4. XANAX [Concomitant]
  5. AMBIEN [Concomitant]
  6. MULTIVITAMIN [Concomitant]
  7. GLYBURIDE [Concomitant]
  8. LASIX [Concomitant]
  9. ALDACTONE [Concomitant]
  10. INDERAL [Concomitant]
  11. ZANTAC [Concomitant]
  12. LONOX [Concomitant]

REACTIONS (4)
  - FEELING ABNORMAL [None]
  - ORAL SOFT TISSUE DISORDER [None]
  - RASH [None]
  - THROAT LESION [None]
